FAERS Safety Report 11187193 (Version 1)
Quarter: 2015Q2

REPORT INFORMATION
  Report Type: Spontaneous
  Country: US (occurrence: US)
  Receive Date: 20150615
  Receipt Date: 20150615
  Transmission Date: 20150821
  Serious: No
  Sender: FDA-Public Use
  Company Number: US-JNJFOC-20150606754

PATIENT

DRUGS (2)
  1. XARELTO [Suspect]
     Active Substance: RIVAROXABAN
     Indication: THROMBOSIS PROPHYLAXIS
     Dosage: 20 MG TABLET CUT INHALF TO GET 10 MG DOSE
     Route: 048
     Dates: start: 20150512
  2. XARELTO [Suspect]
     Active Substance: RIVAROXABAN
     Indication: ORTHOPAEDIC PROCEDURE
     Dosage: 20 MG TABLET CUT INHALF TO GET 10 MG DOSE
     Route: 048
     Dates: start: 20150512

REACTIONS (2)
  - Drug prescribing error [Unknown]
  - Wrong technique in drug usage process [Unknown]

NARRATIVE: CASE EVENT DATE: 20150512
